FAERS Safety Report 5510036-5 (Version None)
Quarter: 2007Q4

REPORT INFORMATION
  Report Type: 
  Country: None (occurrence: None)
  Receive Date: 20071108
  Receipt Date: 20061221
  Transmission Date: 20080405
  Serious: No
  Sender: FDA-Public Use
  Company Number: US-ABBOTT-06P-163-0354311-00

PATIENT
  Sex: Female
  Weight: 68.1 kg

DRUGS (3)
  1. BIAXIN [Suspect]
     Indication: EAR INFECTION
     Route: 048
     Dates: start: 20061211, end: 20061221
  2. CYCLOSPORINE [Concomitant]
     Indication: RENAL TRANSPLANT
     Route: 048
     Dates: start: 20020101
  3. ESOMEPRAZOLE [Concomitant]
     Indication: GASTROOESOPHAGEAL REFLUX DISEASE

REACTIONS (1)
  - DYSGEUSIA [None]
